FAERS Safety Report 9870410 (Version 1)
Quarter: 2014Q1

REPORT INFORMATION
  Report Type: Spontaneous
  Country: US (occurrence: None)
  Receive Date: 20140203
  Receipt Date: 20140203
  Transmission Date: 20141002
  Serious: Yes (Other)
  Sender: FDA-Public Use
  Company Number: AUR-APL-2014-00568

PATIENT
  Age: 71 Year
  Sex: Female

DRUGS (2)
  1. DONEPEZIL (DONEPEZIL) [Suspect]
     Indication: VASCULAR DEMENTIA
  2. DONEPEZIL (DONEPEZIL) [Suspect]
     Indication: BIPOLAR DISORDER

REACTIONS (1)
  - Mania [None]
